FAERS Safety Report 9526585 (Version 2)
Quarter: 2014Q1

REPORT INFORMATION
  Report Type: Spontaneous
  Country: US (occurrence: US)
  Receive Date: 20130916
  Receipt Date: 20140107
  Transmission Date: 20141002
  Serious: Yes (Hospitalization)
  Sender: FDA-Public Use
  Company Number: US-PFIZER INC-2013264328

PATIENT
  Age: 44 Year
  Sex: Female

DRUGS (1)
  1. XELJANZ [Suspect]
     Indication: RHEUMATOID ARTHRITIS
     Dosage: 5 MG, 2X/DAY

REACTIONS (7)
  - Cardiac disorder [Unknown]
  - Chest pain [Unknown]
  - Inflammation [Unknown]
  - Weight increased [Unknown]
  - Local swelling [Unknown]
  - Renal function test abnormal [Unknown]
  - Nodule [Unknown]
